FAERS Safety Report 10039063 (Version 1)
Quarter: 2014Q1

REPORT INFORMATION
  Report Type: Spontaneous
  Country: US (occurrence: None)
  Receive Date: 20140306
  Receipt Date: 20140306
  Transmission Date: 20141002
  Serious: Yes (Hospitalization, Other)
  Sender: FDA-Public Use
  Company Number: 163-21880-13084092

PATIENT
  Age: 71 Year
  Sex: Female

DRUGS (7)
  1. REVLIMID (LENALIDOMIDE) (15 MILLIGRAM, CAPSULES) [Suspect]
     Indication: PLASMA CELL MYELOMA
     Dosage: 15 MG, 21 IN 28 D, PO
     Route: 048
     Dates: start: 201307, end: 201308
  2. AMLODIPINE BESYLATE (AMLODIPINE BESILATE) (TABLETS)? [Concomitant]
  3. LOSARTAN POTASSIUM (LOSARTAN POTASSIUM) (TABLETS) [Concomitant]
  4. WARFARIN SODIUM (WARFARIN SODIUM) (TABLETS) [Concomitant]
  5. DEXAMETHASONE (DEXAMETHASONE) (TABLETS) [Concomitant]
  6. ASPIRIN (ACETYLSALICYLIC ACID) (ENTERIC-COATED TABLET) [Concomitant]
  7. METOPROLOL/HCTZ (CO-BETALOC) (TABLETS) [Concomitant]

REACTIONS (6)
  - Thrombosis [None]
  - Rib fracture [None]
  - Fall [None]
  - Dysuria [None]
  - Muscle spasms [None]
  - Fatigue [None]
